FAERS Safety Report 8820385 (Version 1)
Quarter: 2012Q4

REPORT INFORMATION
  Report Type: 
  Country: US (occurrence: US)
  Receive Date: 20121002
  Receipt Date: 20121002
  Transmission Date: 20130627
  Serious: Yes (Other)
  Sender: FDA-Public Use
  Company Number: US-UCBSA-067638

PATIENT
  Age: 39 Year
  Sex: Female
  Weight: 67.59 kg

DRUGS (8)
  1. CIMZIA [Suspect]
     Indication: CROHN^S DISEASE
     Route: 058
     Dates: start: 201112
  2. IMURAN [Concomitant]
     Indication: CROHN^S DISEASE
     Dosage: 4 PILL A DAY
     Route: 048
  3. LORTAB [Concomitant]
     Indication: CROHN^S DISEASE
     Route: 048
  4. ESTRADOL [Concomitant]
     Indication: HYSTERECTOMY
     Route: 048
  5. LAMOTIL [Concomitant]
     Indication: DIARRHOEA
     Route: 048
  6. PROZAC [Concomitant]
     Indication: DEPRESSION
     Route: 048
  7. PROZAC [Concomitant]
     Indication: ANXIETY
     Route: 048
  8. XANAX [Concomitant]
     Indication: ANXIETY
     Route: 048

REACTIONS (2)
  - Generalised oedema [Not Recovered/Not Resolved]
  - Oedema [Not Recovered/Not Resolved]
